FAERS Safety Report 14567191 (Version 2)
Quarter: 2018Q2

REPORT INFORMATION
  Report Type: Report from Study
  Country: CA (occurrence: CA)
  Receive Date: 20180223
  Receipt Date: 20180409
  Transmission Date: 20180711
  Serious: Yes (Hospitalization, Other)
  Sender: FDA-Public Use
  Company Number: CA-JNJFOC-20180101382

PATIENT
  Age: 54 Year
  Sex: Male

DRUGS (1)
  1. STELARA [Suspect]
     Active Substance: USTEKINUMAB
     Indication: PSORIASIS
     Dosage: STRENGTH = 90 MG
     Route: 058
     Dates: start: 20170323

REACTIONS (7)
  - Pharyngitis [Unknown]
  - Pneumonia [Unknown]
  - Therapeutic response decreased [Unknown]
  - Stoma site infection [Unknown]
  - Psoriasis [Unknown]
  - Clostridium difficile infection [Unknown]
  - Tracheostomy [Unknown]

NARRATIVE: CASE EVENT DATE: 2017
